FAERS Safety Report 8451978 (Version 2)
Quarter: 2012Q4

REPORT INFORMATION
  Report Type: 
  Country: JP (occurrence: JP)
  Receive Date: 20120309
  Receipt Date: 20120907
  Transmission Date: 20130627
  Serious: Yes (Death, Other)
  Sender: FDA-Public Use
  Company Number: PHHY2012JP019023

PATIENT
  Age: 54 Year
  Sex: Female
  Weight: 52 kg

DRUGS (9)
  1. LEUCOVORIN CALCIUM [Suspect]
     Indication: COLON CANCER METASTATIC
     Dosage: Total 26 courses
     Dates: start: 200611, end: 200801
  2. LEUCOVORIN CALCIUM [Suspect]
     Dosage: Total 4 courses
     Dates: start: 200802, end: 200904
  3. LEUCOVORIN CALCIUM [Suspect]
     Dates: start: 201001
  4. 5-FLUOROURACIL [Suspect]
     Indication: COLON CANCER METASTATIC
     Dosage: Total 26 courses
     Dates: start: 200611, end: 200801
  5. 5-FLUOROURACIL [Suspect]
     Dosage: UNK UKN, UNK
     Dates: start: 200802, end: 200904
  6. 5-FLUOROURACIL [Suspect]
     Dates: start: 201001
  7. OXALIPLATIN [Suspect]
     Indication: COLON CANCER METASTATIC
     Dates: start: 200611, end: 200801
  8. BEVACIZUMAB [Suspect]
     Indication: COLON CANCER METASTATIC
     Dates: start: 200805, end: 200904
  9. LANSOPRAZOLE [Concomitant]
     Indication: GASTRITIS

REACTIONS (4)
  - Death [Fatal]
  - Malignant neoplasm progression [Unknown]
  - Neutropenia [Unknown]
  - Drug ineffective [Unknown]
